FAERS Safety Report 24061333 (Version 1)
Quarter: 2024Q3

REPORT INFORMATION
  Report Type: Spontaneous
  Country: AT (occurrence: AT)
  Receive Date: 20240708
  Receipt Date: 20240708
  Transmission Date: 20241017
  Serious: Yes (Other)
  Sender: TEVA
  Company Number: AT-TEVA-VS-3215650

PATIENT
  Age: 65 Year
  Sex: Female

DRUGS (1)
  1. PANTOPRAZOLE SODIUM [Suspect]
     Active Substance: PANTOPRAZOLE SODIUM
     Indication: Oesophagogastroscopy
     Dosage: PANTOPRAZOL 40MG RATIOPHARM, 40MG 2 TABLETS PER DAY
     Route: 048
     Dates: start: 2024

REACTIONS (6)
  - Swollen tongue [Unknown]
  - Peripheral swelling [Unknown]
  - Mouth swelling [Unknown]
  - Eye swelling [Unknown]
  - Weight increased [Unknown]
  - Fatigue [Unknown]

NARRATIVE: CASE EVENT DATE: 20240101
